FAERS Safety Report 8014925-1 (Version None)
Quarter: 2011Q4

REPORT INFORMATION
  Report Type: 
  Country: None (occurrence: None)
  Receive Date: 20111229
  Receipt Date: 20111223
  Transmission Date: 20120403
  Serious: Yes (Hospitalization)
  Sender: FDA-Public Use
  Company Number: JP-ROCHE-625314

PATIENT
  Sex: Male
  Weight: 95 kg

DRUGS (19)
  1. ACTEMRA [Suspect]
     Route: 041
     Dates: start: 20081208, end: 20081208
  2. ACTEMRA [Suspect]
     Route: 041
     Dates: start: 20090303, end: 20090303
  3. ACTEMRA [Suspect]
     Route: 041
     Dates: start: 20090727, end: 20090727
  4. ACTEMRA [Suspect]
     Route: 041
     Dates: start: 20091008, end: 20091008
  5. PREDNISOLONE [Concomitant]
     Route: 048
     Dates: start: 20090203, end: 20090615
  6. ACTEMRA [Suspect]
     Route: 041
     Dates: start: 20090421, end: 20090421
  7. ACTEMRA [Suspect]
     Route: 041
     Dates: start: 20090106, end: 20090106
  8. ACTEMRA [Suspect]
     Indication: RHEUMATOID ARTHRITIS
     Route: 041
     Dates: start: 20081110, end: 20081110
  9. ACTEMRA [Suspect]
     Route: 041
  10. PREDNISOLONE [Concomitant]
     Route: 048
     Dates: start: 20090616, end: 20090816
  11. PREDNISOLONE [Concomitant]
     Route: 048
  12. MUCOSTA [Concomitant]
     Dosage: FORM: ORAL FORMULATION (NOS)
     Route: 048
  13. ACTEMRA [Suspect]
     Route: 041
     Dates: start: 20090519, end: 20090101
  14. ACTEMRA [Suspect]
     Route: 041
     Dates: start: 20090825, end: 20090825
  15. ALENDRONATE SODIUM [Concomitant]
     Dosage: DRUG: BONALON 35 MG
     Route: 048
  16. ACTEMRA [Suspect]
     Route: 041
     Dates: start: 20090203, end: 20090203
  17. ACTEMRA [Suspect]
     Route: 041
     Dates: start: 20090616, end: 20090616
  18. PREDNISOLONE [Concomitant]
     Route: 048
  19. VOLTAREN-XR [Concomitant]
     Dosage: FORM: SUSTAINED RELEASE CAPSULE
     Route: 048

REACTIONS (2)
  - SUBCUTANEOUS ABSCESS [None]
  - VARICOSE VEIN RUPTURED [None]
